FAERS Safety Report 6807596-0 (Version None)
Quarter: 2010Q2

REPORT INFORMATION
  Report Type: 
  Country: None (occurrence: None)
  Receive Date: 20100625
  Receipt Date: 20100611
  Transmission Date: 20101027
  Serious: Yes (Disabling)
  Sender: FDA-Public Use
  Company Number: 2010AL003490

PATIENT
  Sex: Female

DRUGS (1)
  1. METOCLOPRAMIDE [Suspect]
     Indication: DRUG USE FOR UNKNOWN INDICATION
     Dosage: PO
     Route: 048
     Dates: start: 20091101, end: 20100201

REACTIONS (8)
  - ACTIVITIES OF DAILY LIVING IMPAIRED [None]
  - ANHEDONIA [None]
  - EXTRAPYRAMIDAL DISORDER [None]
  - MENTAL DISORDER [None]
  - MOVEMENT DISORDER [None]
  - NERVOUS SYSTEM DISORDER [None]
  - PAIN [None]
  - TARDIVE DYSKINESIA [None]
